FAERS Safety Report 7459576-2 (Version None)
Quarter: 2011Q2

REPORT INFORMATION
  Report Type: 
  Country: None (occurrence: None)
  Receive Date: 20110504
  Receipt Date: 20110504
  Transmission Date: 20111010
  Serious: Yes (Hospitalization)
  Sender: FDA-Public Use
  Company Number: None

PATIENT
  Sex: Female
  Weight: 69.4 kg

DRUGS (5)
  1. CYCLOPHOSPHAMIDE [Suspect]
     Dosage: 1530MG
  2. PREDNISONE [Suspect]
     Dosage: 400MG
  3. VINCRISTINE SULFATE [Suspect]
     Dosage: 2MG
  4. RITUXIMAB (MOAB C2B8 ANTI CD20 CHIMERIC) [Suspect]
     Dosage: 765MG
  5. DOXORUBICIN HCL [Suspect]
     Dosage: 102MG

REACTIONS (1)
  - MUCOSAL INFLAMMATION [None]
